FAERS Safety Report 23524761 (Version 12)
Quarter: 2025Q4

REPORT INFORMATION
  Report Type: Report from Study
  Country: EU (occurrence: EU)
  Receive Date: 20240215
  Receipt Date: 20251022
  Transmission Date: 20260118
  Serious: Yes (Hospitalization)
  Sender: ABBVIE
  Company Number: EU-ABBVIE-5637303

PATIENT
  Age: 79 Year
  Sex: Male

DRUGS (28)
  1. CARBIDOPA [Suspect]
     Active Substance: CARBIDOPA
     Indication: Parkinson^s disease
     Dosage: FREQUENCY TEXT: CONTINUOUS?LAST ADMIN DATE: SEP 2024
     Route: 050
     Dates: start: 20240911
  2. CARBIDOPA [Suspect]
     Active Substance: CARBIDOPA
     Dosage: CONTINUOUS RATE 3.0ML/PH FOR 16 HRS, MORNING DOSE 6ML, EXTRA DOSE 0.9ML
     Route: 050
     Dates: end: 2024
  3. CARBIDOPA [Suspect]
     Active Substance: CARBIDOPA
     Dosage: EXTRA DOSE 1ML,?LAST ADMIN DATE: 2024
     Route: 050
     Dates: start: 20240815
  4. CARBIDOPA [Suspect]
     Active Substance: CARBIDOPA
     Dosage: FREQUENCY TEXT: CONTINUOUS
     Route: 050
     Dates: start: 20220323
  5. CARBIDOPA [Suspect]
     Active Substance: CARBIDOPA
     Dosage: NIGHT CONTINUOUS- 1.5ML/HR, NIGHT EXTRA- 0.9ML, CONTINUOUS -3.0ML/HR, EXTRA- 0.9ML, MORNING- 6ML,...
     Route: 050
     Dates: start: 20240903
  6. CARBIDOPA [Suspect]
     Active Substance: CARBIDOPA
     Dosage: NIGHT CONTINUOUS- 2ML/HR,
     Route: 050
     Dates: start: 20240913
  7. CARBIDOPA [Suspect]
     Active Substance: CARBIDOPA
     Dosage: NIGHT CONTINUOUS- 2ML/HR,
     Route: 050
     Dates: start: 20240902, end: 20240902
  8. CARBIDOPA [Suspect]
     Active Substance: CARBIDOPA
     Dosage: 1 CASSETTE
     Route: 050
     Dates: start: 20250107
  9. BOTOX [Suspect]
     Active Substance: ONABOTULINUMTOXINA
     Indication: Dystonia
     Dosage: TIME INTERVAL: AS NECESSARY
     Route: 065
  10. STALEVO [Concomitant]
     Active Substance: CARBIDOPA\ENTACAPONE\LEVODOPA
     Indication: Product used for unknown indication
     Dosage: 125MG; 125/31.25/200MG AT 11AM/2PM/5PM/8PM
  11. STALEVO [Concomitant]
     Active Substance: CARBIDOPA\ENTACAPONE\LEVODOPA
     Indication: Product used for unknown indication
     Dosage: 150MG; AT 8AM - 150/37.5/200MG
  12. RIVASTIGMINE [Concomitant]
     Active Substance: RIVASTIGMINE
     Indication: Product used for unknown indication
     Dosage: 9.5MG?FREQUENCY TEXT: AS PER PRESCRIPTION; 24HR; DAILY
  13. MIDAZOLAM [Concomitant]
     Active Substance: MIDAZOLAM
     Indication: Product used for unknown indication
     Dosage: 2.5MG?AS NEEDED
  14. SINEMET CR [Concomitant]
     Active Substance: CARBIDOPA\LEVODOPA
     Indication: Product used for unknown indication
     Dosage: 250MG; 50/200 AT 11PM
  15. RIVOTRIL [Concomitant]
     Active Substance: CLONAZEPAM
     Indication: Product used for unknown indication
     Dosage: 0.5MG
  16. ESCITALOPRAM [Concomitant]
     Active Substance: ESCITALOPRAM OXALATE
     Indication: Product used for unknown indication
  17. ESCITALOPRAM [Concomitant]
     Active Substance: ESCITALOPRAM OXALATE
     Indication: Product used for unknown indication
  18. PANTOPRAZOLE [Concomitant]
     Active Substance: PANTOPRAZOLE
     Indication: Product used for unknown indication
  19. OPICAPONE [Concomitant]
     Active Substance: OPICAPONE
     Indication: Product used for unknown indication
     Dosage: NIGHT
     Route: 065
  20. AMOXICILLIN [Concomitant]
     Active Substance: AMOXICILLIN
     Indication: Product used for unknown indication
     Dosage: TIME INTERVAL: 0.33333333 DAYS: 875.125 MG
     Route: 065
  21. ENTACAPONE [Concomitant]
     Active Substance: ENTACAPONE
     Indication: Product used for unknown indication
     Dosage: 200MG, AT 11PM
     Route: 065
  22. OLANZAPINE [Concomitant]
     Active Substance: OLANZAPINE
     Indication: Product used for unknown indication
     Route: 065
  23. SINEMET [Concomitant]
     Active Substance: CARBIDOPA\LEVODOPA
     Indication: Product used for unknown indication
     Route: 065
  24. MOVICOL [Concomitant]
     Active Substance: POLYETHYLENE GLYCOL 3350\POTASSIUM CHLORIDE\SODIUM BICARBONATE\SODIUM CHLORIDE
     Indication: Product used for unknown indication
     Route: 065
  25. BUMETANIDE [Concomitant]
     Active Substance: BUMETANIDE
     Indication: Product used for unknown indication
     Route: 065
  26. CLONAZEPAM [Concomitant]
     Active Substance: CLONAZEPAM
     Indication: Product used for unknown indication
     Dosage: 0.5MG
     Route: 065
  27. BENSERAZIDE HYDROCHLORIDE\LEVODOPA [Concomitant]
     Active Substance: BENSERAZIDE HYDROCHLORIDE\LEVODOPA
     Indication: Product used for unknown indication
     Dosage: TIME INTERVAL: 0.33333333 DAYS: 100/25MG; 125MG
     Route: 065
  28. APOMORPHINE [Suspect]
     Active Substance: APOMORPHINE
     Indication: Product used for unknown indication
     Route: 065

REACTIONS (15)
  - Mobility decreased [Not Recovered/Not Resolved]
  - Wrong technique in device usage process [Recovered/Resolved]
  - Injection site reaction [Not Recovered/Not Resolved]
  - Pain in extremity [Not Recovered/Not Resolved]
  - Anxiety [Not Recovered/Not Resolved]
  - Wheelchair user [Recovered/Resolved]
  - Therapeutic product effect incomplete [Not Recovered/Not Resolved]
  - Loss of personal independence in daily activities [Not Recovered/Not Resolved]
  - Sleep disorder [Not Recovered/Not Resolved]
  - General symptom [Not Recovered/Not Resolved]
  - Poor quality sleep [Not Recovered/Not Resolved]
  - On and off phenomenon [Unknown]
  - Dystonia [Unknown]
  - Bowel movement irregularity [Unknown]
  - Parkinson^s disease [Unknown]

NARRATIVE: CASE EVENT DATE: 20240101
